FAERS Safety Report 6014422-9 (Version None)
Quarter: 2008Q4

REPORT INFORMATION
  Report Type: 
  Country: None (occurrence: None)
  Receive Date: 20081219
  Receipt Date: 20080623
  Transmission Date: 20090506
  Serious: No
  Sender: FDA-Public Use
  Company Number: A0732456A

PATIENT
  Age: 80 Year
  Sex: Male

DRUGS (4)
  1. AVODART [Suspect]
     Indication: DRUG USE FOR UNKNOWN INDICATION
     Route: 065
     Dates: start: 20061201
  2. FISH OIL [Concomitant]
  3. FLAX SEED OIL [Concomitant]
  4. MULTI-VITAMIN [Concomitant]

REACTIONS (2)
  - BACK PAIN [None]
  - DIZZINESS [None]
